FAERS Safety Report 6955384-7 (Version None)
Quarter: 2010Q3

REPORT INFORMATION
  Report Type: 
  Country: None (occurrence: None)
  Receive Date: 20100830
  Receipt Date: 20100518
  Transmission Date: 20110219
  Serious: Yes (Hospitalization, Other)
  Sender: FDA-Public Use
  Company Number: US-MYLANLABS-2010S1008905

PATIENT
  Age: 57 Year
  Sex: Female
  Weight: 59.88 kg

DRUGS (9)
  1. LISINOPRIL [Suspect]
     Indication: BLOOD PRESSURE INCREASED
     Route: 048
     Dates: start: 20100213, end: 20100315
  2. EFFEXOR [Concomitant]
     Indication: ANXIETY
  3. BIOTIN [Concomitant]
  4. COQ10 [Concomitant]
  5. SELENIUM [Concomitant]
  6. ALPHA LIPOIC ACID [Concomitant]
  7. CALCIUM [Concomitant]
  8. VITAMIN D [Concomitant]
  9. FISH OIL [Concomitant]

REACTIONS (1)
  - PANCREATITIS [None]
